FAERS Safety Report 5064215-4 (Version None)
Quarter: 2006Q3

REPORT INFORMATION
  Report Type: 
  Country: None (occurrence: None)
  Receive Date: 20060728
  Receipt Date: 20060313
  Transmission Date: 20061208
  Serious: No
  Sender: FDA-Public Use
  Company Number: US-GLAXOSMITHKLINE-A0597310A

PATIENT
  Age: 88 Year
  Sex: Male

DRUGS (1)
  1. ZANTAC [Suspect]
     Indication: NAUSEA
     Dosage: 300MG AT NIGHT
     Route: 048

REACTIONS (1)
  - URINE OUTPUT INCREASED [None]
